FAERS Safety Report 7903832-8 (Version None)
Quarter: 2011Q4

REPORT INFORMATION
  Report Type: 
  Country: None (occurrence: None)
  Receive Date: 20111109
  Receipt Date: 20111101
  Transmission Date: 20120403
  Serious: Yes (Other)
  Sender: FDA-Public Use
  Company Number: US-BRISTOL-MYERS SQUIBB COMPANY-16159337

PATIENT
  Sex: Male
  Weight: 71 kg

DRUGS (4)
  1. TRUVADA [Concomitant]
     Dosage: 1 DF = 200/300 UNITS NOS
  2. REYATAZ [Suspect]
     Indication: HIV INFECTION
     Dosage: THERAPY ON SEP05,05SEP11
     Route: 048
     Dates: start: 20041201
  3. AMITRIPTYLINE HCL [Concomitant]
     Indication: MYOPATHY
  4. NORVIR [Concomitant]

REACTIONS (6)
  - GENERALISED OEDEMA [None]
  - CD4 LYMPHOCYTES DECREASED [None]
  - BLOOD BILIRUBIN INCREASED [None]
  - ABDOMINAL DISTENSION [None]
  - WEIGHT INCREASED [None]
  - SEBORRHOEIC DERMATITIS [None]
